FAERS Safety Report 6148529-2 (Version None)
Quarter: 2009Q2

REPORT INFORMATION
  Report Type: 
  Country: None (occurrence: None)
  Receive Date: 20090406
  Receipt Date: 20090406
  Transmission Date: 20091009
  Serious: No
  Sender: FDA-Public Use
  Company Number: None

PATIENT
  Age: 39 Year
  Sex: Male
  Weight: 68.0396 kg

DRUGS (1)
  1. ABILIFY [Suspect]
     Indication: TRAUMATIC BRAIN INJURY
     Dosage: 2MG PO
     Route: 048
     Dates: start: 20080930, end: 20090405

REACTIONS (10)
  - ABDOMINAL DISCOMFORT [None]
  - AGITATION [None]
  - ANGER [None]
  - ANXIETY [None]
  - DIZZINESS [None]
  - DRY MOUTH [None]
  - MUSCULOSKELETAL STIFFNESS [None]
  - NAUSEA [None]
  - REPETITIVE SPEECH [None]
  - SCREAMING [None]
